FAERS Safety Report 24455830 (Version 3)
Quarter: 2025Q4

REPORT INFORMATION
  Report Type: Report from Study
  Country: ZA (occurrence: ZA)
  Receive Date: 20241017
  Receipt Date: 20251129
  Transmission Date: 20260118
  Serious: Yes (Death)
  Sender: ROCHE
  Company Number: ZA-ROCHE-3508057

PATIENT
  Sex: Male
  Weight: 88 kg

DRUGS (2)
  1. RITUXIMAB [Suspect]
     Active Substance: RITUXIMAB
     Indication: Rheumatoid arthritis
     Dosage: REPEATED 6-MONTHLY
     Route: 042
     Dates: start: 20230824
  2. RITUXIMAB [Suspect]
     Active Substance: RITUXIMAB
     Route: 042

REACTIONS (4)
  - Death [Fatal]
  - C-reactive protein increased [Unknown]
  - White blood cell count increased [Unknown]
  - C-reactive protein increased [Unknown]
